FAERS Safety Report 17849548 (Version 1)
Quarter: 2020Q2

REPORT INFORMATION
  Report Type: Spontaneous
  Country: US (occurrence: US)
  Receive Date: 20200602
  Receipt Date: 20200602
  Transmission Date: 20200714
  Serious: Yes (Disabling)
  Sender: FDA-Public Use
  Company Number: None

PATIENT
  Age: 24 Year
  Sex: Female
  Weight: 59.85 kg

DRUGS (5)
  1. WOMEN^S MULTIVITAMIN [Concomitant]
  2. ASPIRIN. [Concomitant]
     Active Substance: ASPIRIN
  3. ETONOGESTREL/ETHINYL ESTRADIOL [Suspect]
     Active Substance: ETHINYL ESTRADIOL\ETONOGESTREL
     Indication: CONTRACEPTION
     Dosage: ?          QUANTITY:1 RING;OTHER FREQUENCY:EVERY 3 WEEKS;?
     Route: 067
     Dates: start: 20200404, end: 20200601
  4. ETONOGESTREL/ETHINYL ESTRADIOL [Concomitant]
     Active Substance: ETHINYL ESTRADIOL\ETONOGESTREL
  5. TURMERIC CUT CUMIN COMPLEX SUPPLEMENT [Concomitant]

REACTIONS (2)
  - Furuncle [None]
  - Hidradenitis [None]

NARRATIVE: CASE EVENT DATE: 20200506
